FAERS Safety Report 12956850 (Version 1)
Quarter: 2016Q4

REPORT INFORMATION
  Report Type: Spontaneous
  Country: US (occurrence: US)
  Receive Date: 20161118
  Receipt Date: 20161118
  Transmission Date: 20170207
  Serious: No
  Sender: FDA-Public Use
  Company Number: US-ELI_LILLY_AND_COMPANY-US201607012051

PATIENT
  Sex: Female
  Weight: 78.46 kg

DRUGS (5)
  1. CYMBALTA [Suspect]
     Active Substance: DULOXETINE HYDROCHLORIDE
     Indication: MAJOR DEPRESSION
     Dosage: 60 MG, QD
     Route: 065
     Dates: end: 20090826
  2. CYMBALTA [Suspect]
     Active Substance: DULOXETINE HYDROCHLORIDE
     Dosage: 30 MG, QOD
     Route: 065
     Dates: start: 20091007
  3. CYMBALTA [Suspect]
     Active Substance: DULOXETINE HYDROCHLORIDE
     Dosage: 30 MG, QD
     Route: 065
     Dates: start: 20090916
  4. PRISTIQ EXTENDED-RELEASE [Concomitant]
     Active Substance: DESVENLAFAXINE SUCCINATE
     Indication: MAJOR DEPRESSION
     Dosage: 50 MG, QD
     Route: 065
  5. NEURONTIN [Concomitant]
     Active Substance: GABAPENTIN
     Indication: MAJOR DEPRESSION
     Dosage: 300 MG, BID
     Route: 065

REACTIONS (6)
  - Toothache [Unknown]
  - Paranoia [Unknown]
  - Agitation [Unknown]
  - Drug withdrawal syndrome [Unknown]
  - Sensory disturbance [Unknown]
  - Anxiety [Unknown]
